FAERS Safety Report 24410343 (Version 1)
Quarter: 2024Q4

REPORT INFORMATION
  Report Type: Spontaneous
  Country: FR (occurrence: FR)
  Receive Date: 20241008
  Receipt Date: 20241008
  Transmission Date: 20250115
  Serious: Yes (Congenital Anomaly, Other)
  Sender: RANBAXY
  Company Number: FR-AFSSAPS-PV2024000590

PATIENT
  Age: 1 Day
  Sex: Male
  Weight: 0.79 kg

DRUGS (8)
  1. QUETIAPINE [Suspect]
     Active Substance: QUETIAPINE
     Indication: Schizophrenia
     Dosage: 3 DOSAGE FORM, DAILY, PRECISE DATES OF TREATMENT NOT KNOWN
     Route: 064
  2. ALDOMET [Suspect]
     Active Substance: METHYLDOPA
     Indication: Schizophrenia
     Dosage: UNK
     Route: 064
  3. HALDOL [Suspect]
     Active Substance: HALOPERIDOL
     Indication: Schizophrenia
     Dosage: 3 DOSAGE FORM, 1DOSE/28DAYS
     Route: 064
  4. TRANDATE [Suspect]
     Active Substance: LABETALOL HYDROCHLORIDE
     Indication: Schizophrenia
     Dosage: UNK
     Route: 064
  5. TROPATEPINE HYDROCHLORIDE [Suspect]
     Active Substance: TROPATEPINE HYDROCHLORIDE
     Indication: Schizophrenia
     Dosage: 1 DOSAGE FORM, DAILY
     Route: 064
  6. LITHIUM [Suspect]
     Active Substance: LITHIUM
     Indication: Schizophrenia
     Dosage: 2 DOSAGE FORM, DAILY
     Route: 064
  7. URAPIDIL [Suspect]
     Active Substance: URAPIDIL
     Indication: Schizophrenia
     Dosage: UNK
     Route: 064
  8. NICARDIPINE HYDROCHLORIDE [Suspect]
     Active Substance: NICARDIPINE HYDROCHLORIDE
     Indication: Schizophrenia
     Dosage: UNK
     Route: 064

REACTIONS (9)
  - Foetal growth restriction [Recovered/Resolved]
  - Bronchopulmonary dysplasia [Recovered/Resolved]
  - Premature baby [Recovered/Resolved]
  - Hyponatraemia [Recovered/Resolved]
  - Hypospadias [Recovered/Resolved]
  - Neonatal respiratory distress syndrome [Recovered/Resolved]
  - Maternal exposure during pregnancy [Recovered/Resolved]
  - Jaundice neonatal [Recovered/Resolved]
  - Anaemia neonatal [Recovered/Resolved]
